FAERS Safety Report 7795525-5 (Version None)
Quarter: 2011Q4

REPORT INFORMATION
  Report Type: 
  Country: None (occurrence: None)
  Receive Date: 20111004
  Receipt Date: 20110926
  Transmission Date: 20120403
  Serious: Yes (Other)
  Sender: FDA-Public Use
  Company Number: SE-ALEXION-A201101434

PATIENT
  Sex: Female
  Weight: 68 kg

DRUGS (6)
  1. SOLIRIS [Suspect]
     Indication: PAROXYSMAL NOCTURNAL HAEMOGLOBINURIA
     Route: 042
  2. SOLIRIS [Suspect]
     Dosage: 900 MG, Q2W
     Route: 042
     Dates: start: 20101103
  3. FOLIC ACID [Concomitant]
     Indication: PREGNANCY
  4. BEHEPAN [Concomitant]
     Indication: PREGNANCY
     Dosage: 1 MG, UNK
     Route: 048
     Dates: start: 20110803
  5. FOLIC ACID [Concomitant]
     Indication: HAEMOLYSIS
     Dosage: 5 MG, UNK
     Route: 048
     Dates: start: 20090914
  6. FRAGMIN [Concomitant]
     Indication: PREGNANCY
     Dosage: 5000 U, UNK
     Route: 058
     Dates: start: 20110803

REACTIONS (3)
  - MATERNAL EXPOSURE DURING PREGNANCY [None]
  - PREGNANCY [None]
  - ABORTION INDUCED [None]
